FAERS Safety Report 13844074 (Version 1)
Quarter: 2017Q3

REPORT INFORMATION
  Report Type: Spontaneous
  Country: US (occurrence: US)
  Receive Date: 20170808
  Receipt Date: 20170808
  Transmission Date: 20171127
  Serious: No
  Sender: FDA-Public Use
  Company Number: US-PFIZER INC-2017340646

PATIENT
  Age: 80 Year
  Sex: Female

DRUGS (6)
  1. DETROL LA [Suspect]
     Active Substance: TOLTERODINE TARTRATE
     Indication: ABDOMINAL PAIN LOWER
  2. DETROL LA [Suspect]
     Active Substance: TOLTERODINE TARTRATE
     Indication: AUTOMATIC BLADDER
     Dosage: 4 MG, 1X/DAY
     Route: 048
     Dates: start: 201706
  3. AMITRIPTYLINE [Concomitant]
     Active Substance: AMITRIPTYLINE
     Indication: SLEEP DISORDER
     Dosage: 10 MG AT NIGHT
  4. DETROL LA [Suspect]
     Active Substance: TOLTERODINE TARTRATE
     Indication: ABDOMINAL DISCOMFORT
  5. METOPROLOL. [Concomitant]
     Active Substance: METOPROLOL
     Indication: BLOOD PRESSURE ABNORMAL
     Dosage: 6.25 MG, 2X/DAY
  6. METOPROLOL. [Concomitant]
     Active Substance: METOPROLOL
     Indication: MITRAL VALVE PROLAPSE

REACTIONS (2)
  - Constipation [Not Recovered/Not Resolved]
  - Product use in unapproved indication [Unknown]

NARRATIVE: CASE EVENT DATE: 201706
